FAERS Safety Report 6900303-2 (Version None)
Quarter: 2010Q3

REPORT INFORMATION
  Report Type: 
  Country: None (occurrence: None)
  Receive Date: 20100803
  Receipt Date: 20100720
  Transmission Date: 20110219
  Serious: Yes (Other)
  Sender: FDA-Public Use
  Company Number: PHHY2010US48041

PATIENT
  Age: 51 Year
  Sex: Female
  Weight: 100 kg

DRUGS (2)
  1. RECLAST [Suspect]
     Dosage: UNK
  2. MYLANTA [Concomitant]

REACTIONS (14)
  - CRYING [None]
  - DYSPHAGIA [None]
  - DYSPNOEA [None]
  - HYPOTONIA [None]
  - LIP SWELLING [None]
  - MALAISE [None]
  - MOUTH ULCERATION [None]
  - MUSCLE SPASMS [None]
  - MUSCLE TIGHTNESS [None]
  - OROPHARYNGEAL BLISTERING [None]
  - PAIN [None]
  - SPEECH DISORDER [None]
  - STOMATITIS [None]
  - TONGUE ULCERATION [None]
